FAERS Safety Report 10879740 (Version 1)
Quarter: 2015Q1

REPORT INFORMATION
  Report Type: Spontaneous
  Country: US (occurrence: None)
  Receive Date: 20150224
  Receipt Date: 20150224
  Transmission Date: 20150721
  Serious: Yes (Hospitalization)
  Sender: FDA-Public Use
  Company Number: None

PATIENT
  Age: 50 Year
  Sex: Male
  Weight: 98.9 kg

DRUGS (2)
  1. TAXOL [Suspect]
     Active Substance: PACLITAXEL
     Dates: end: 20150120
  2. CARBOPLATIN. [Suspect]
     Active Substance: CARBOPLATIN
     Dates: end: 20150120

REACTIONS (7)
  - Post procedural complication [None]
  - Wound abscess [None]
  - Pneumoperitoneum [None]
  - Vomiting [None]
  - Wound infection staphylococcal [None]
  - Nausea [None]
  - Catheter site pain [None]

NARRATIVE: CASE EVENT DATE: 20150125
